FAERS Safety Report 8332209-9 (Version None)
Quarter: 2012Q2

REPORT INFORMATION
  Report Type: 
  Country: None (occurrence: None)
  Receive Date: 20120503
  Receipt Date: 20120423
  Transmission Date: 20120825
  Serious: No
  Sender: FDA-Public Use
  Company Number: US-BIOGENIDEC-2012BI003567

PATIENT
  Age: 57 Year
  Sex: Female

DRUGS (2)
  1. TYSABRI [Suspect]
     Indication: MULTIPLE SCLEROSIS
     Route: 042
     Dates: start: 20080528
  2. AVONEX [Concomitant]
     Indication: MULTIPLE SCLEROSIS
     Route: 030
     Dates: start: 20030723

REACTIONS (9)
  - GENERAL SYMPTOM [None]
  - DEPRESSION [None]
  - VERTIGO [None]
  - EAR DISORDER [None]
  - OROPHARYNGEAL PAIN [None]
  - SENSATION OF FOREIGN BODY [None]
  - RESPIRATORY TRACT CONGESTION [None]
  - INAPPROPRIATE AFFECT [None]
  - DYSPNOEA EXERTIONAL [None]
